FAERS Safety Report 8264577-0 (Version None)
Quarter: 2012Q2

REPORT INFORMATION
  Report Type: 
  Country: None (occurrence: None)
  Receive Date: 20120406
  Receipt Date: 20120329
  Transmission Date: 20120825
  Serious: Yes (Life-Threatening, Hospitalization, Other)
  Sender: FDA-Public Use
  Company Number: CL-ABBOTT-11P-034-0884917-00

PATIENT
  Sex: Male
  Weight: 86 kg

DRUGS (1)
  1. HUMIRA [Suspect]
     Indication: JUVENILE ARTHRITIS
     Route: 058
     Dates: start: 20101001, end: 20111201

REACTIONS (9)
  - PNEUMONIA [None]
  - WEIGHT DECREASED [None]
  - PYREXIA [None]
  - PRIMITIVE NEUROECTODERMAL TUMOUR METASTATIC [None]
  - FATIGUE [None]
  - PLEURAL EFFUSION [None]
  - VARICELLA [None]
  - EWING'S SARCOMA [None]
  - COUGH [None]
